FAERS Safety Report 17079665 (Version 1)
Quarter: 2019Q4

REPORT INFORMATION
  Report Type: Spontaneous
  Country: US (occurrence: US)
  Receive Date: 20191029
  Receipt Date: 20191029
  Transmission Date: 20200122
  Serious: No
  Sender: FDA-Public Use
  Company Number: None

PATIENT
  Age: 22 Year
  Sex: Male
  Weight: 65.77 kg

DRUGS (2)
  1. METOPROLOL SUCC [Suspect]
     Active Substance: METOPROLOL SUCCINATE
     Indication: TACHYCARDIA
     Route: 048
     Dates: start: 20191026, end: 20191028
  2. METOPROLOL SUCC [Suspect]
     Active Substance: METOPROLOL SUCCINATE
     Indication: PALPITATIONS

REACTIONS (3)
  - Palpitations [None]
  - Chest discomfort [None]
  - Dyspnoea [None]

NARRATIVE: CASE EVENT DATE: 20191026
